FAERS Safety Report 5483604-7 (Version None)
Quarter: 2007Q4

REPORT INFORMATION
  Report Type: 
  Country: None (occurrence: None)
  Receive Date: 20071009
  Receipt Date: 20070921
  Transmission Date: 20080405
  Serious: Yes (Hospitalization)
  Sender: FDA-Public Use
  Company Number: 8025610

PATIENT
  Age: 73 Year
  Sex: Male

DRUGS (2)
  1. KEPPRA [Suspect]
     Indication: CONVULSION
     Dosage: 1500 MG 2/D PO
     Route: 048
  2. KEPPRA [Suspect]
     Indication: CONVULSION
     Dosage: 500 MG

REACTIONS (5)
  - ECZEMA [None]
  - FALL [None]
  - GAIT DISTURBANCE [None]
  - MUSCULAR WEAKNESS [None]
  - URTICARIA [None]
